FAERS Safety Report 13373667 (Version 3)
Quarter: 2017Q2

REPORT INFORMATION
  Report Type: Spontaneous
  Country: US (occurrence: US)
  Receive Date: 20170327
  Receipt Date: 20170607
  Transmission Date: 20170830
  Serious: No
  Sender: FDA-Public Use
  Company Number: US-PFIZER INC-2017125114

PATIENT
  Age: 77 Year
  Sex: Female
  Weight: 50 kg

DRUGS (13)
  1. IBUPROFEN. [Concomitant]
     Active Substance: IBUPROFEN
     Indication: SPONDYLITIS
     Dosage: 600 MG, 2X/DAY (200MG TAKES THREE MIDDLE DAY AND THREE BEFORE BED)
  2. LISINOPRIL. [Concomitant]
     Active Substance: LISINOPRIL
     Dosage: UNK, DAILY
     Dates: start: 20161011
  3. CITALOPRAM [Concomitant]
     Active Substance: CITALOPRAM HYDROBROMIDE
     Indication: DEPRESSION
  4. AMLODIPINE [Concomitant]
     Active Substance: AMLODIPINE BESYLATE
     Dosage: UNK, DAILY
     Dates: start: 20161011
  5. CITALOPRAM [Concomitant]
     Active Substance: CITALOPRAM HYDROBROMIDE
     Indication: EMOTIONAL DISTRESS
     Dosage: 20 MG, 1X/DAY
     Dates: start: 2007
  6. PREMARIN [Suspect]
     Active Substance: ESTROGENS, CONJUGATED
     Indication: OESTROGEN REPLACEMENT THERAPY
     Dosage: 1 CC, 2X/WEEK
     Route: 067
     Dates: start: 2007
  7. LISINOPRIL. [Concomitant]
     Active Substance: LISINOPRIL
     Indication: HYPERTENSION
     Dosage: 10 MG, 1X/DAY
  8. SIMETHICONE (DIMETHICONE) [Concomitant]
     Active Substance: DIMETHICONE
     Indication: FLATULENCE
     Dosage: 250 MG, AS NEEDED, TWO 125MG AT NIGHT BEFORE SHE GOES TO BED
  9. SIMETHICONE (DIMETHICONE) [Concomitant]
     Active Substance: DIMETHICONE
     Indication: ABDOMINAL DISTENSION
  10. CITALOPRAM [Concomitant]
     Active Substance: CITALOPRAM HYDROBROMIDE
     Indication: ANXIETY
     Dosage: UNK, DAILY
     Dates: start: 20161011
  11. PREMARIN [Suspect]
     Active Substance: ESTROGENS, CONJUGATED
     Dosage: 1 CC, WEEKLY
     Route: 067
  12. RANITIDINE. [Concomitant]
     Active Substance: RANITIDINE
     Indication: HYPERCHLORHYDRIA
     Dosage: 300 MG (TWO 150MG), 1X/DAY
  13. AMLODIPINE [Concomitant]
     Active Substance: AMLODIPINE BESYLATE
     Indication: HYPERTENSION
     Dosage: 10 MG, 1X/DAY
     Dates: start: 2008

REACTIONS (7)
  - Vaginal discharge [Unknown]
  - Urethral pain [Recovering/Resolving]
  - Drug effect incomplete [Unknown]
  - Urethritis noninfective [Recovering/Resolving]
  - Vaginal infection [Unknown]
  - Dysuria [Unknown]
  - Intentional product misuse [Unknown]
